FAERS Safety Report 6617666-8 (Version None)
Quarter: 2010Q1

REPORT INFORMATION
  Report Type: 
  Country: None (occurrence: None)
  Receive Date: 20100308
  Receipt Date: 20100226
  Transmission Date: 20100710
  Serious: Yes (Hospitalization)
  Sender: FDA-Public Use
  Company Number: 2007BI009072

PATIENT
  Age: 55 Year
  Sex: Female
  Weight: 56 kg

DRUGS (4)
  1. AVONEX [Suspect]
     Indication: MULTIPLE SCLEROSIS
     Route: 030
     Dates: start: 19970812, end: 19990224
  2. AVONEX [Suspect]
     Route: 030
     Dates: start: 20000810, end: 20010214
  3. AVONEX [Suspect]
     Route: 030
     Dates: start: 20030101
  4. AVONEX [Suspect]
     Route: 030
     Dates: start: 20090829

REACTIONS (6)
  - DYSPNOEA [None]
  - FALL [None]
  - HEMIPARESIS [None]
  - ROTATOR CUFF SYNDROME [None]
  - ULNAR NERVE INJURY [None]
  - URTICARIA [None]
